FAERS Safety Report 7494282-X (Version None)
Quarter: 2011Q2

REPORT INFORMATION
  Report Type: 
  Country: None (occurrence: None)
  Receive Date: 20110520
  Receipt Date: 20110517
  Transmission Date: 20111010
  Serious: Yes (Hospitalization)
  Sender: FDA-Public Use
  Company Number: DE-SANOFI-AVENTIS-2011SA030543

PATIENT
  Age: 49 Year
  Sex: Female
  Weight: 66 kg

DRUGS (10)
  1. TAMOXIFEN CITRATE [Suspect]
     Indication: BREAST CANCER
     Route: 048
     Dates: start: 20091112
  2. TAMOXIFEN CITRATE [Suspect]
     Route: 048
  3. DEXAMETHASONE [Suspect]
     Indication: SUPPORTIVE CARE
     Route: 042
     Dates: start: 20091112
  4. CYCLOPHOSPHAMIDE [Suspect]
     Route: 041
  5. DOCETAXEL [Suspect]
     Route: 041
  6. DEXAMETHASONE [Suspect]
     Route: 042
  7. GRANISETRON HCL [Suspect]
     Route: 042
  8. GRANISETRON HCL [Suspect]
     Indication: SUPPORTIVE CARE
     Route: 042
     Dates: start: 20091112
  9. DOCETAXEL [Suspect]
     Indication: BREAST CANCER
     Route: 041
     Dates: start: 20091112, end: 20091112
  10. CYCLOPHOSPHAMIDE [Suspect]
     Indication: BREAST CANCER
     Route: 041
     Dates: start: 20091112, end: 20091112

REACTIONS (1)
  - ENDOMETRIAL HYPERPLASIA [None]
